FAERS Safety Report 9734796 (Version 1)
Quarter: 2013Q4

REPORT INFORMATION
  Report Type: Spontaneous
  Country: IL (occurrence: IL)
  Receive Date: 20131206
  Receipt Date: 20131206
  Transmission Date: 20140711
  Serious: Yes (Hospitalization)
  Sender: FDA-Public Use
  Company Number: IL-VERTEX PHARMACEUTICALS INC-2013-011614

PATIENT
  Age: 58 Year
  Sex: Female

DRUGS (3)
  1. INCIVO [Suspect]
     Indication: HEPATITIS C
     Dosage: 750 MG, TID
     Route: 048
     Dates: start: 20130728
  2. COPEGUS [Suspect]
     Indication: HEPATITIS C
     Dosage: 200 MG 5 TIMES IN A DAY
     Route: 048
     Dates: start: 20130728
  3. PEGASYS [Suspect]
     Indication: HEPATITIS C
     Route: 058
     Dates: start: 20130728

REACTIONS (3)
  - Pyrexia [Recovered/Resolved]
  - Furuncle [Recovered/Resolved]
  - Folliculitis [Recovered/Resolved]
